FAERS Safety Report 8894909 (Version 3)
Quarter: 2012Q4

REPORT INFORMATION
  Report Type: 
  Country: US (occurrence: US)
  Receive Date: 20121108
  Receipt Date: 20121217
  Transmission Date: 20130627
  Serious: Yes (Death)
  Sender: FDA-Public Use
  Company Number: US-PFIZER INC-2012253514

PATIENT
  Age: 57 Year
  Sex: Male
  Weight: 55.78 kg

DRUGS (11)
  1. CAMPTOSAR [Suspect]
     Indication: COLON CANCER
     Dosage: 299 mg, every two weeks
     Route: 042
     Dates: start: 201204
  2. CAMPTOSAR [Suspect]
     Indication: COLON CANCER
     Dosage: UNK
     Route: 042
     Dates: end: 20120808
  3. LEUCOVORIN [Concomitant]
     Dosage: UNK
  4. 5-FLUOROURACIL [Concomitant]
     Dosage: UNK
  5. COMPAZINE [Concomitant]
     Indication: NAUSEA
     Dosage: 10 mg, every 4 hrs
  6. ZOFRAN [Concomitant]
     Indication: NAUSEA
     Dosage: 8 mg, every eight hours
  7. DILAUDID [Concomitant]
     Indication: PAIN
     Dosage: 4mg, 3-4 tablets every four hours
  8. MORPHINE [Concomitant]
     Indication: PAIN
     Dosage: 90 mg, 2x/day
  9. MORPHINE [Concomitant]
     Indication: PAIN
     Dosage: 30 mg, every 4 hrs
  10. RESTORIL [Concomitant]
     Indication: SLEEP PROBLEM
     Dosage: 15mg, 1-2 tablets daily
  11. SENOKOT [Concomitant]
     Indication: CONSTIPATION
     Dosage: UNK, as needed

REACTIONS (5)
  - Disease progression [Fatal]
  - Colon cancer [Fatal]
  - Fatigue [Unknown]
  - Anaemia [Unknown]
  - Diarrhoea [Unknown]
